FAERS Safety Report 15854220 (Version 1)
Quarter: 2019Q1

REPORT INFORMATION
  Report Type: Spontaneous
  Country: US (occurrence: US)
  Receive Date: 20190122
  Receipt Date: 20190122
  Transmission Date: 20190417
  Serious: Yes (Hospitalization, Other)
  Sender: FDA-Public Use
  Company Number: US-GLAXOSMITHKLINE-US2019GSK009176

PATIENT
  Sex: Male
  Weight: 79 kg

DRUGS (3)
  1. PREVACID [Suspect]
     Active Substance: LANSOPRAZOLE
     Indication: GASTROOESOPHAGEAL REFLUX DISEASE
     Dosage: UNK
     Route: 065
  2. PREVACID [Suspect]
     Active Substance: LANSOPRAZOLE
     Indication: GASTROOESOPHAGEAL REFLUX DISEASE
     Dosage: 20 MG, UNK
     Route: 065
  3. PANTOPRAZOLE [Suspect]
     Active Substance: PANTOPRAZOLE
     Indication: GASTROOESOPHAGEAL REFLUX DISEASE
     Dosage: 40 MG, QD
     Route: 048

REACTIONS (15)
  - Glomerulonephritis membranous [Unknown]
  - Chronic kidney disease [Unknown]
  - Hypertensive nephropathy [Unknown]
  - Haematuria [Unknown]
  - Renal impairment [Unknown]
  - Proteinuria [Unknown]
  - Acute kidney injury [Unknown]
  - Glomerulosclerosis [Unknown]
  - Kidney infection [Unknown]
  - Renal pain [Unknown]
  - Nephropathy [Unknown]
  - Blood creatinine increased [Unknown]
  - Glomerulonephropathy [Unknown]
  - Nephrogenic anaemia [Unknown]
  - Nephrotic syndrome [Unknown]
